FAERS Safety Report 7024837 (Version 2)
Quarter: 2016Q2

REPORT INFORMATION
  Report Type: Spontaneous
  Country: FR (occurrence: FR)
  Receive Date: 20090616
  Receipt Date: 20160428
  Transmission Date: 20160815
  Serious: Yes (Hospitalization)
  Sender: FDA-Public Use
  Company Number: FR-ELI_LILLY_AND_COMPANY-FR200906000995

PATIENT
  Age: 76 Year
  Sex: Female

DRUGS (7)
  1. ADANCOR [Concomitant]
     Active Substance: NICORANDIL
     Dosage: 10 MG, DAILY (1/D)
     Route: 065
     Dates: start: 20090414
  2. TRAMADOL /00599202/ [Concomitant]
     Active Substance: TRAMADOL
     Dosage: 100 MG, DAILY (1/D)
     Route: 048
  3. CARBOPLATIN. [Concomitant]
     Active Substance: CARBOPLATIN
     Indication: BREAST CANCER
     Dosage: UNK,  DAY ONE OF 28 DAY CYCLE
     Route: 042
     Dates: start: 20090130
  4. COZAAR [Concomitant]
     Active Substance: LOSARTAN POTASSIUM
     Dosage: 50 MG, DAILY (1/D)
     Route: 048
  5. TENORMIN [Concomitant]
     Active Substance: ATENOLOL
     Dosage: 50 MG, DAILY (1/D)
     Route: 048
     Dates: start: 20090414
  6. GEMZAR [Suspect]
     Active Substance: GEMCITABINE HYDROCHLORIDE
     Indication: BLADDER CANCER
     Dosage: UNK, DAY ONE OF 28 DAY CYCLE
     Route: 042
     Dates: start: 20090130
  7. KARDEGIC [Concomitant]
     Active Substance: ASPIRIN LYSINE
     Dosage: UNK, UNKNOWN
     Route: 065

REACTIONS (4)
  - Acute kidney injury [Recovering/Resolving]
  - Weight increased [Unknown]
  - Capillary leak syndrome [Recovering/Resolving]
  - Generalised oedema [Recovering/Resolving]

NARRATIVE: CASE EVENT DATE: 20090412
